FAERS Safety Report 8962979 (Version 1)
Quarter: 2012Q4

REPORT INFORMATION
  Report Type: Report from Study
  Country: CA (occurrence: CA)
  Receive Date: 20121213
  Receipt Date: 20121213
  Transmission Date: 20130627
  Serious: Yes (Other)
  Sender: FDA-Public Use
  Company Number: CA-ROCHE-1166778

PATIENT
  Sex: Male
  Weight: 65 kg

DRUGS (1)
  1. OMALIZUMAB [Suspect]
     Indication: ASTHMA
     Route: 058
     Dates: start: 20060517

REACTIONS (4)
  - Oesophageal dilatation [Recovered/Resolved]
  - Seasonal allergy [Recovered/Resolved]
  - Lower respiratory tract infection [Unknown]
  - Dyspnoea [Unknown]
